FAERS Safety Report 5844482-7 (Version None)
Quarter: 2008Q3

REPORT INFORMATION
  Report Type: 
  Country: None (occurrence: None)
  Receive Date: 20080812
  Receipt Date: 20080805
  Transmission Date: 20090109
  Serious: Yes (Hospitalization)
  Sender: FDA-Public Use
  Company Number: 2008SP001828

PATIENT
  Age: 91 Year
  Sex: Female

DRUGS (15)
  1. XOPENEX [Suspect]
     Indication: ASTHMA
     Dosage: 0.63 MG/3ML; QID; INHALATION, 1.25; INHALATION; 0.63 MG/3ML; QID; INHALATION
     Route: 055
  2. XOPENEX [Suspect]
     Indication: EMPHYSEMA
     Dosage: 0.63 MG/3ML; QID; INHALATION, 1.25; INHALATION; 0.63 MG/3ML; QID; INHALATION
     Route: 055
  3. LUNESTA [Concomitant]
  4. NEXIUM [Concomitant]
  5. COREG [Concomitant]
  6. IMDUR [Concomitant]
  7. ASACOL [Concomitant]
  8. ASPIRIN [Concomitant]
  9. MULTI-VITAMINS [Concomitant]
  10. REFRESH /00880201/ [Concomitant]
  11. TYLENOL (CAPLET) [Concomitant]
  12. OPATANOL /01362801/ [Concomitant]
  13. DEMADEX [Concomitant]
  14. XANAX [Concomitant]
  15. ENABLEX /01760401/ [Concomitant]

REACTIONS (9)
  - ANXIETY [None]
  - COLITIS [None]
  - COUGH [None]
  - DISCOMFORT [None]
  - FEELING ABNORMAL [None]
  - INCORRECT DOSE ADMINISTERED [None]
  - INSOMNIA [None]
  - LUNG DISORDER [None]
  - MOOD ALTERED [None]
